FAERS Safety Report 12535496 (Version 1)
Quarter: 2016Q3

REPORT INFORMATION
  Report Type: Spontaneous
  Country: US (occurrence: None)
  Receive Date: 20160706
  Receipt Date: 20160706
  Transmission Date: 20161109
  Serious: Yes (Life-Threatening, Hospitalization, Disabling, Other)
  Sender: FDA-Public Use
  Company Number: None

PATIENT
  Age: 25 Year
  Sex: Female
  Weight: 104.33 kg

DRUGS (8)
  1. MONTELUKAST 10 MG TABLET, 10 MG [Suspect]
     Active Substance: MONTELUKAST SODIUM
     Indication: HYPERSENSITIVITY
     Route: 048
     Dates: start: 20150814, end: 20160615
  2. (ACETAMINOPHEN) DIPHENHYDRAMINE HCI [Concomitant]
  3. LORAZEPAM (ATIVAN) [Concomitant]
  4. PROAIR HFA [Concomitant]
     Active Substance: ALBUTEROL SULFATE
  5. MONTELUKAST [Concomitant]
     Active Substance: MONTELUKAST SODIUM
  6. LORATADINE. [Concomitant]
     Active Substance: LORATADINE
  7. CIPROFLOXACIN. [Concomitant]
     Active Substance: CIPROFLOXACIN
  8. MONTELUKAST 10 MG TABLET, 10 MG [Suspect]
     Active Substance: MONTELUKAST SODIUM
     Indication: ASTHMA
     Route: 048
     Dates: start: 20150814, end: 20160615

REACTIONS (13)
  - Hallucination, auditory [None]
  - Suicidal ideation [None]
  - Drug abuse [None]
  - Hallucination, visual [None]
  - Memory impairment [None]
  - Decreased appetite [None]
  - Delusion [None]
  - Fear [None]
  - Contusion [None]
  - Depression [None]
  - Paranoia [None]
  - Aggression [None]
  - Judgement impaired [None]

NARRATIVE: CASE EVENT DATE: 20160630
